FAERS Safety Report 7857924-2 (Version None)
Quarter: 2011Q4

REPORT INFORMATION
  Report Type: 
  Country: None (occurrence: None)
  Receive Date: 20111027
  Receipt Date: 20110214
  Transmission Date: 20120403
  Serious: No
  Sender: FDA-Public Use
  Company Number: US-BAYER-2011-014962

PATIENT
  Sex: Female
  Weight: 76 kg

DRUGS (7)
  1. LEVOTHYROXINE SODIUM [Concomitant]
     Dosage: DAILY ONCE
     Route: 048
  2. DILTIAZEM HCL [Concomitant]
     Dosage: DAILY, ONCE
     Route: 048
  3. ACETAMINOPHEN [Concomitant]
     Dosage: DAILY, ONCE
     Route: 048
  4. ALEVE (CAPLET) [Suspect]
     Indication: PRODUCT USED FOR UNKNOWN INDICATION
     Dosage: DAILY DOSE 1 DF
     Route: 048
     Dates: start: 20110213
  5. ENALAPRIL MALEATE [Concomitant]
     Dosage: UNK UNK, TID
     Route: 048
  6. CLONAZEPAM [Concomitant]
     Dosage: DAILY, ONCE
     Route: 048
  7. EFFEXOR [Concomitant]
     Dosage: DAILY, ONCE
     Route: 048

REACTIONS (3)
  - ASTHENIA [None]
  - DIZZINESS [None]
  - SOMNOLENCE [None]
